FAERS Safety Report 20252190 (Version 1)
Quarter: 2021Q4

REPORT INFORMATION
  Report Type: Report from Study
  Country: US (occurrence: US)
  Receive Date: 20211229
  Receipt Date: 20211229
  Transmission Date: 20220303
  Serious: No
  Sender: FDA-Public Use
  Company Number: US-CLOVIS ONCOLOGY-CLO-2020-002428

PATIENT
  Age: 53 Year
  Sex: Female

DRUGS (10)
  1. RUBRACA [Suspect]
     Active Substance: RUCAPARIB CAMSYLATE
     Indication: Ovarian cancer
     Dosage: 250 MILLIGRAM, BID
     Route: 048
     Dates: end: 20201209
  2. RUBRACA [Suspect]
     Active Substance: RUCAPARIB CAMSYLATE
     Dosage: 250 MILLIGRAM, BID
     Route: 048
     Dates: start: 2020
  3. RUBRACA [Suspect]
     Active Substance: RUCAPARIB CAMSYLATE
     Dosage: 250 MILLIGRAM, QD
     Route: 048
     Dates: start: 20201216, end: 20201225
  4. RUBRACA [Suspect]
     Active Substance: RUCAPARIB CAMSYLATE
     Dosage: 250 MILLIGRAM, BID
     Route: 048
     Dates: start: 20201226, end: 20210104
  5. RUBRACA [Suspect]
     Active Substance: RUCAPARIB CAMSYLATE
     Dosage: 500 MG IN AM/250 MG IN PM
     Route: 048
     Dates: start: 20210105
  6. RUBRACA [Suspect]
     Active Substance: RUCAPARIB CAMSYLATE
     Dosage: 500 MILLIGRAM, BID
     Route: 048
  7. RUBRACA [Suspect]
     Active Substance: RUCAPARIB CAMSYLATE
     Dosage: 500 MILLIGRAM, BID
     Route: 048
  8. POTASSIUM CHLORIDE [Concomitant]
     Active Substance: POTASSIUM CHLORIDE
     Indication: Product used for unknown indication
     Dosage: UNK
  9. CLARINEX [Concomitant]
     Active Substance: DESLORATADINE
     Indication: Product used for unknown indication
     Dosage: UNK
  10. VITAMINS NOS [Concomitant]
     Active Substance: VITAMINS
     Indication: Product used for unknown indication
     Dosage: UNK

REACTIONS (7)
  - Gingival bleeding [Unknown]
  - Depression [Unknown]
  - Headache [Not Recovered/Not Resolved]
  - Abdominal distension [Unknown]
  - Rash [Recovered/Resolved]
  - Muscular weakness [Unknown]
  - Fatigue [Not Recovered/Not Resolved]

NARRATIVE: CASE EVENT DATE: 20201201
